FAERS Safety Report 21504763 (Version 1)
Quarter: 2022Q4

REPORT INFORMATION
  Report Type: Spontaneous
  Country: US (occurrence: US)
  Receive Date: 20221025
  Receipt Date: 20221025
  Transmission Date: 20230113
  Serious: No
  Sender: FDA-Public Use
  Company Number: US-JNJFOC-20221024374

PATIENT
  Age: 49 Year
  Sex: Female
  Weight: 104.42 kg

DRUGS (14)
  1. INVEGA TRINZA [Suspect]
     Active Substance: PALIPERIDONE PALMITATE
     Indication: Product used for unknown indication
     Route: 030
     Dates: start: 20220928
  2. INVEGA TRINZA [Suspect]
     Active Substance: PALIPERIDONE PALMITATE
  3. INVEGA TRINZA [Suspect]
     Active Substance: PALIPERIDONE PALMITATE
  4. INVEGA [Suspect]
     Active Substance: PALIPERIDONE
     Indication: Product used for unknown indication
     Route: 048
     Dates: start: 20210401
  5. TRINTELLIX [Concomitant]
     Active Substance: VORTIOXETINE HYDROBROMIDE
  6. ARICEPT [Concomitant]
     Active Substance: DONEPEZIL HYDROCHLORIDE
  7. BENZTROPINE [Concomitant]
     Active Substance: BENZTROPINE
  8. ALPRAZOLAM [Concomitant]
     Active Substance: ALPRAZOLAM
     Dosage: AS NEEDED VERY INFREQUENTLY (UP TO 3 TIMES A DAY AS NEEDED, LAST FILLED 4 MONTHS AGO)
  9. LANTUS [Concomitant]
     Active Substance: INSULIN GLARGINE
  10. INSULIN ASPART [Concomitant]
     Active Substance: INSULIN ASPART
     Dosage: 100U/ML 18-46 UNITS THREE TIMES A DAY BEFORE MEALS
  11. VICTOZA [Concomitant]
     Active Substance: LIRAGLUTIDE
  12. TOPIRAMATE [Concomitant]
     Active Substance: TOPIRAMATE
  13. ATORVASTATIN [Concomitant]
     Active Substance: ATORVASTATIN
  14. OLANZAPINE [Concomitant]
     Active Substance: OLANZAPINE
     Dosage: 1-2 NIGHTLY AS NEEDED

REACTIONS (1)
  - Paranoia [Unknown]

NARRATIVE: CASE EVENT DATE: 20220101
